FAERS Safety Report 10302089 (Version 2)
Quarter: 2014Q3

REPORT INFORMATION
  Report Type: Spontaneous
  Country: IN (occurrence: None)
  Receive Date: 20140709
  Receipt Date: 20140819
  Transmission Date: 20150326
  Serious: Yes (Other)
  Sender: FDA-Public Use
  Company Number: AUR-APL-2014-07089

PATIENT
  Age: 4 Year
  Sex: Male
  Weight: 14 kg

DRUGS (2)
  1. DIVALPROEX [Suspect]
     Active Substance: DIVALPROEX SODIUM
     Indication: EPILEPSY
     Route: 064
  2. FOLIC ACID. [Concomitant]
     Active Substance: FOLIC ACID

REACTIONS (10)
  - Foetal anticonvulsant syndrome [None]
  - Hypotelorism of orbit [None]
  - Premature closure of cranial sutures [None]
  - Astigmatism [None]
  - Coloboma [None]
  - Anisometropia [None]
  - Foetal exposure during pregnancy [None]
  - Maternal drugs affecting foetus [None]
  - Developmental delay [None]
  - Dysmorphism [None]
